FAERS Safety Report 18953053 (Version 1)
Quarter: 2021Q1

REPORT INFORMATION
  Report Type: Spontaneous
  Country: US (occurrence: US)
  Receive Date: 20210227
  Receipt Date: 20210227
  Transmission Date: 20210420
  Serious: Yes (Other)
  Sender: FDA-Public Use
  Company Number: None

PATIENT
  Age: 83 Year
  Sex: Female

DRUGS (1)
  1. LEVOTHYROXINE TAB 100MCG [Suspect]
     Active Substance: LEVOTHYROXINE
     Dates: start: 20200227, end: 20210227

REACTIONS (6)
  - Pharyngeal swelling [None]
  - Product substitution issue [None]
  - Drug intolerance [None]
  - Dyspnoea [None]
  - Sinus congestion [None]
  - Paranasal sinus hyposecretion [None]

NARRATIVE: CASE EVENT DATE: 20200227
